FAERS Safety Report 23626890 (Version 3)
Quarter: 2024Q1

REPORT INFORMATION
  Report Type: Spontaneous
  Country: US (occurrence: US)
  Receive Date: 20240313
  Receipt Date: 20240327
  Transmission Date: 20240409
  Serious: Yes (Other)
  Sender: FDA-Public Use
  Company Number: US-GLAXOSMITHKLINE-US2024AMR031347

PATIENT

DRUGS (1)
  1. ZEJULA [Suspect]
     Active Substance: NIRAPARIB
     Indication: Product used for unknown indication
     Dosage: 200 MG, QD

REACTIONS (7)
  - Neuropathy peripheral [Recovering/Resolving]
  - Blood pressure increased [Recovering/Resolving]
  - Blood pressure systolic decreased [Recovering/Resolving]
  - Hypoaesthesia [Not Recovered/Not Resolved]
  - Neuralgia [Recovering/Resolving]
  - Blood pressure diastolic increased [Recovering/Resolving]
  - Blood test abnormal [Recovering/Resolving]
